FAERS Safety Report 7310122-3 (Version None)
Quarter: 2011Q1

REPORT INFORMATION
  Report Type: 
  Country: None (occurrence: None)
  Receive Date: 20110224
  Receipt Date: 20110215
  Transmission Date: 20110831
  Serious: No
  Sender: FDA-Public Use
  Company Number: US-PFIZER INC-2010150814

PATIENT
  Sex: Female
  Weight: 99.8 kg

DRUGS (7)
  1. PRISTIQ [Suspect]
     Indication: DEPRESSION
     Dosage: 50 MG, 1X/DAY
     Route: 048
     Dates: start: 20100514
  2. TOPROL-XL [Concomitant]
     Indication: HYPERTENSION
     Dosage: 100 MG, UNK
  3. CRESTOR [Concomitant]
     Indication: BLOOD CHOLESTEROL INCREASED
     Dosage: 10 MG, UNK
  4. MAXZIDE [Concomitant]
     Dosage: (HYDROCHLOROTHIAZIDE 37.5)/(TRIAMTERENE 25 MG)
  5. RESTORIL [Concomitant]
     Dosage: 30 MG, UNK
     Dates: end: 20100101
  6. ALCOHOL [Interacting]
     Dosage: UNK
     Dates: start: 20101028
  7. PRISTIQ [Interacting]
     Indication: ANXIETY

REACTIONS (7)
  - ALCOHOL INTERACTION [None]
  - DYSGEUSIA [None]
  - FEELING ABNORMAL [None]
  - MALAISE [None]
  - SLUGGISHNESS [None]
  - NIGHTMARE [None]
  - SKIN SENSITISATION [None]
